FAERS Safety Report 5716064-9 (Version None)
Quarter: 2008Q2

REPORT INFORMATION
  Report Type: 
  Country: None (occurrence: None)
  Receive Date: 20080423
  Receipt Date: 20080423
  Transmission Date: 20081010
  Serious: Yes (Disabling)
  Sender: FDA-Public Use
  Company Number: None

PATIENT
  Sex: Male
  Weight: 93.441 kg

DRUGS (2)
  1. CLOZAPINE [Suspect]
     Indication: SCHIZOPHRENIA
     Dosage: 125MG DAILY PO
     Route: 048
     Dates: start: 20040901, end: 20080301
  2. CLOZAPINE [Suspect]

REACTIONS (1)
  - NEUTROPHIL COUNT DECREASED [None]
